FAERS Safety Report 7434536-6 (Version None)
Quarter: 2011Q2

REPORT INFORMATION
  Report Type: 
  Country: None (occurrence: None)
  Receive Date: 20110425
  Receipt Date: 20110411
  Transmission Date: 20111010
  Serious: Yes (Other)
  Sender: FDA-Public Use
  Company Number: US-BAYER-2011-030889

PATIENT
  Age: 72 Year
  Sex: Female

DRUGS (2)
  1. NEXAVAR EDUCATION COMPAIGN IN US [Suspect]
     Indication: HEPATIC NEOPLASM MALIGNANT
     Dosage: 200 MG, BID
     Dates: start: 20110309, end: 20110314
  2. NEXAVAR EDUCATION COMPAIGN IN US [Suspect]
     Dosage: 200 MG, BID
     Dates: start: 20110317, end: 20110320

REACTIONS (8)
  - RASH [None]
  - FACIAL PAIN [None]
  - CELLULITIS [None]
  - ERYTHEMA [None]
  - JOINT SWELLING [None]
  - PAIN IN EXTREMITY [None]
  - PRURITUS [None]
  - ARTHRALGIA [None]
